FAERS Safety Report 9534916 (Version 1)
Quarter: 2013Q3

REPORT INFORMATION
  Report Type: Spontaneous
  Country: US (occurrence: US)
  Receive Date: 20130918
  Receipt Date: 20130918
  Transmission Date: 20140515
  Serious: No
  Sender: FDA-Public Use
  Company Number: US-PURDUE-USA-2011-0080047

PATIENT
  Sex: Male

DRUGS (1)
  1. BUTRANS [Suspect]
     Indication: PAIN
     Dosage: UNK
     Route: 062

REACTIONS (4)
  - Hyperchlorhydria [Not Recovered/Not Resolved]
  - Application site rash [Not Recovered/Not Resolved]
  - Vomiting [Recovered/Resolved]
  - Somnolence [Recovered/Resolved]
